FAERS Safety Report 16361973 (Version 1)
Quarter: 2019Q3

REPORT INFORMATION
  Report Type: Spontaneous
  Country: US (occurrence: US)
  Receive Date: 20190525
  Receipt Date: 20190525
  Transmission Date: 20191004
  Serious: No
  Sender: FDA-Public Use
  Company Number: None

PATIENT
  Age: 69 Year
  Sex: Female
  Weight: 81 kg

DRUGS (6)
  1. LEXAPRO [Concomitant]
     Active Substance: ESCITALOPRAM OXALATE
  2. HEART RECORDER [Concomitant]
  3. VITAMIN D [Concomitant]
     Active Substance: VITAMIN D NOS
  4. PRALUENT [Suspect]
     Active Substance: ALIROCUMAB
     Indication: TYPE IIA HYPERLIPIDAEMIA
     Dosage: ?          OTHER FREQUENCY:NO BI/MONTHLY;?
     Route: 058
     Dates: start: 20190405, end: 20190517
  5. ASPRIN [Concomitant]
     Active Substance: ASPIRIN
  6. GABAPENTIN. [Concomitant]
     Active Substance: GABAPENTIN

REACTIONS (5)
  - Pruritus [None]
  - Anxiety [None]
  - Swelling face [None]
  - Rash pustular [None]
  - Rash [None]

NARRATIVE: CASE EVENT DATE: 20190510
